FAERS Safety Report 9358458 (Version 1)
Quarter: 2013Q2

REPORT INFORMATION
  Report Type: Spontaneous
  Country: GR (occurrence: GR)
  Receive Date: 20130620
  Receipt Date: 20130620
  Transmission Date: 20140414
  Serious: Yes (Hospitalization, Other)
  Sender: FDA-Public Use
  Company Number: GR-ROXANE LABORATORIES, INC.-2013-RO-00991RO

PATIENT
  Age: 72 Year
  Sex: Female

DRUGS (1)
  1. LETROZOLE [Suspect]
     Indication: ADJUVANT THERAPY
     Dosage: 2.5 MG

REACTIONS (2)
  - Macular oedema [Unknown]
  - Retinal toxicity [Not Recovered/Not Resolved]
